FAERS Safety Report 6015595-4 (Version None)
Quarter: 2008Q4

REPORT INFORMATION
  Report Type: 
  Country: None (occurrence: None)
  Receive Date: 20081222
  Receipt Date: 20081216
  Transmission Date: 20090506
  Serious: Yes (Hospitalization)
  Sender: FDA-Public Use
  Company Number: US-ASTRAZENECA-2008UW28097

PATIENT
  Age: 15652 Day
  Sex: Female

DRUGS (1)
  1. SEROQUEL [Suspect]
     Route: 048
     Dates: start: 20071201, end: 20081206

REACTIONS (5)
  - CRYING [None]
  - DEHYDRATION [None]
  - EATING DISORDER [None]
  - NAUSEA [None]
  - SLEEP DISORDER [None]
